FAERS Safety Report 22277269 (Version 1)
Quarter: 2023Q2

REPORT INFORMATION
  Report Type: Spontaneous
  Country: AU (occurrence: AU)
  Receive Date: 20230503
  Receipt Date: 20230503
  Transmission Date: 20230721
  Serious: Yes (Hospitalization, Other)
  Sender: FDA-Public Use
  Company Number: AU-JNJFOC-20230453105

PATIENT
  Age: 11 Month
  Sex: Female

DRUGS (2)
  1. INVEGA [Suspect]
     Active Substance: PALIPERIDONE
     Indication: Product used for unknown indication
     Route: 048
  2. SERTRALINE [Suspect]
     Active Substance: SERTRALINE HYDROCHLORIDE
     Indication: Product used for unknown indication
     Dosage: 1/2 TAB
     Route: 065

REACTIONS (10)
  - Accidental exposure to product by child [Unknown]
  - Capillary disorder [Unknown]
  - Coma scale abnormal [Unknown]
  - Drooling [Unknown]
  - Floppy infant [Unknown]
  - Hypotension [Unknown]
  - Hypoventilation [Unknown]
  - Nystagmus [Unknown]
  - Respiratory rate decreased [Unknown]
  - Somnolence [Unknown]

NARRATIVE: CASE EVENT DATE: 20210414
